FAERS Safety Report 6301747-2 (Version None)
Quarter: 2009Q3

REPORT INFORMATION
  Report Type: 
  Country: None (occurrence: None)
  Receive Date: 20090807
  Receipt Date: 20090728
  Transmission Date: 20100115
  Serious: Yes (Hospitalization)
  Sender: FDA-Public Use
  Company Number: DE-ABBOTT-09P-062-0588246-00

PATIENT
  Age: 72 Year
  Sex: Female

DRUGS (5)
  1. HUMIRA [Suspect]
     Indication: DRUG USE FOR UNKNOWN INDICATION
     Route: 058
     Dates: start: 20070801
  2. HUMIRA [Suspect]
     Route: 058
     Dates: start: 20060601, end: 20061101
  3. MTX [Concomitant]
     Indication: RHEUMATOID ARTHRITIS
  4. LEFLUNOMIDE [Concomitant]
     Indication: RHEUMATOID ARTHRITIS
  5. CYCLOSPORINE [Concomitant]
     Indication: RHEUMATOID ARTHRITIS

REACTIONS (1)
  - PERONEAL NERVE PALSY POSTOPERATIVE [None]
